FAERS Safety Report 4417689-3 (Version None)
Quarter: 2004Q2

REPORT INFORMATION
  Report Type: 
  Country: None (occurrence: None)
  Receive Date: 20040629
  Receipt Date: 20031203
  Transmission Date: 20050107
  Serious: Yes (Hospitalization)
  Sender: FDA-Public Use
  Company Number: USA031253834

PATIENT
  Sex: Female

DRUGS (1)
  1. HUMALOG [Suspect]
     Dosage: 54 U/DAY

REACTIONS (3)
  - FEELING ABNORMAL [None]
  - PAIN [None]
  - SMALL INTESTINAL HAEMORRHAGE [None]
